FAERS Safety Report 19225563 (Version 6)
Quarter: 2024Q3

REPORT INFORMATION
  Report Type: Spontaneous
  Country: DE (occurrence: DE)
  Receive Date: 20210505
  Receipt Date: 20240930
  Transmission Date: 20241017
  Serious: Yes (Other)
  Sender: AUROBINDO
  Company Number: DE-002147023-NVSC2021DE046774

PATIENT
  Sex: Female

DRUGS (6)
  1. LETROZOLE [Suspect]
     Active Substance: LETROZOLE
     Indication: Breast cancer metastatic
     Dosage: 2.5 MILLIGRAM, ONCE A DAY
     Route: 048
     Dates: start: 20200922
  2. LETROZOLE [Suspect]
     Active Substance: LETROZOLE
     Indication: Hormone receptor positive HER2 negative breast cancer
  3. KISQALI [Suspect]
     Active Substance: RIBOCICLIB
     Indication: Breast cancer metastatic
     Dosage: 600 MILLIGRAM, ONCE A DAY (SCHEMA 21 DAYS INTAKE, 7 DAYS PAUSE)
     Route: 048
     Dates: start: 20200922, end: 20201213
  4. KISQALI [Suspect]
     Active Substance: RIBOCICLIB
     Indication: Hormone receptor positive HER2 negative breast cancer
     Dosage: 600 MILLIGRAM, ONCE A DAY (SCHEMA 21 DAYS INTAKE, 7 DAYS PAUSE)
     Route: 048
     Dates: start: 20201221, end: 20240205
  5. KISQALI [Suspect]
     Active Substance: RIBOCICLIB
     Dosage: 600 MILLIGRAM, ONCE A DAY 600 MG, QD (SCHEMA 21 DAYS INTAKE, 7 DAYS PAUSE)
     Route: 048
     Dates: start: 20240329, end: 20240425
  6. KISQALI [Suspect]
     Active Substance: RIBOCICLIB
     Dosage: 600 MILLIGRAM, ONCE A DAY 600 MG, QD 600 MG, QD (SCHEMA 21 DAYS INTAKE, 7 DAYS PAUSE)
     Route: 048
     Dates: start: 20240521

REACTIONS (3)
  - Neutropenia [Recovered/Resolved]
  - Syncope [Recovered/Resolved]
  - Cardiovascular disorder [Recovered/Resolved]

NARRATIVE: CASE EVENT DATE: 20201214
